FAERS Safety Report 11607792 (Version 1)
Quarter: 2015Q4

REPORT INFORMATION
  Report Type: Report from Study
  Country: US (occurrence: US)
  Receive Date: 20151007
  Receipt Date: 20151007
  Transmission Date: 20160304
  Serious: Yes (Hospitalization)
  Sender: FDA-Public Use
  Company Number: US-JNJFOC-20151004230

PATIENT
  Age: 80 Year
  Sex: Female

DRUGS (4)
  1. IMBRUVICA [Suspect]
     Active Substance: IBRUTINIB
     Indication: CHRONIC LYMPHOCYTIC LEUKAEMIA
     Route: 065
     Dates: start: 201509, end: 201509
  2. ASPIRIN. [Concomitant]
     Active Substance: ASPIRIN
     Indication: CARDIOVASCULAR EVENT PROPHYLAXIS
  3. FOLIC ACID. [Concomitant]
     Active Substance: FOLIC ACID
     Indication: SUPPLEMENTATION THERAPY
  4. VITAMIN D3 [Concomitant]
     Active Substance: CHOLECALCIFEROL
     Indication: SUPPLEMENTATION THERAPY

REACTIONS (5)
  - Fluid retention [Not Recovered/Not Resolved]
  - Renal failure [Not Recovered/Not Resolved]
  - Rash [Recovering/Resolving]
  - Infection [Recovering/Resolving]
  - Pulmonary oedema [Not Recovered/Not Resolved]

NARRATIVE: CASE EVENT DATE: 201509
